FAERS Safety Report 5821170-4 (Version None)
Quarter: 2008Q3

REPORT INFORMATION
  Report Type: 
  Country: None (occurrence: None)
  Receive Date: 20080721
  Receipt Date: 20080707
  Transmission Date: 20090109
  Serious: Yes (Hospitalization)
  Sender: FDA-Public Use
  Company Number: DSU-2008-01022

PATIENT
  Age: 74 Year
  Sex: Female
  Weight: 61.2356 kg

DRUGS (5)
  1. BENICAR HCT [Suspect]
     Indication: HYPERTENSION
     Dosage: 40/25 MG (QD), PER ORAL
     Route: 048
  2. ATENOLOL [Concomitant]
  3. LIBRAX (CAPSULE) [Concomitant]
  4. NAPROSYN (NAPROXEN) (375 MILLIGRAM, TABLET) (NAPROXEN) [Concomitant]
  5. PRILOSEC (OMEPRAZOLE) (20 MILLIGRAM, CAPSULE) (OMEPRAZOLE) [Concomitant]

REACTIONS (4)
  - CARDIAC STRESS TEST ABNORMAL [None]
  - CHEST PAIN [None]
  - CORONARY ARTERIAL STENT INSERTION [None]
  - DYSPNOEA [None]
